FAERS Safety Report 19923291 (Version 1)
Quarter: 2021Q4

REPORT INFORMATION
  Report Type: Spontaneous
  Country: US (occurrence: US)
  Receive Date: 20211005
  Receipt Date: 20211005
  Transmission Date: 20220303
  Serious: No
  Sender: FDA-Public Use
  Company Number: 2021A732933

PATIENT
  Age: 23793 Day
  Sex: Female
  Weight: 90.3 kg

DRUGS (3)
  1. PULMICORT FLEXHALER [Interacting]
     Active Substance: BUDESONIDE
     Indication: Asthma
     Route: 055
     Dates: start: 20210910, end: 20210910
  2. LOSARTAN [Interacting]
     Active Substance: LOSARTAN
     Route: 065
  3. ASPIRIN [Interacting]
     Active Substance: ASPIRIN
     Dosage: AS REQUIRED
     Route: 065

REACTIONS (3)
  - Drug interaction [Unknown]
  - Lip swelling [Recovered/Resolved]
  - Urticaria [Recovered/Resolved]

NARRATIVE: CASE EVENT DATE: 20210910
